FAERS Safety Report 15703619 (Version 1)
Quarter: 2018Q4

REPORT INFORMATION
  Report Type: Spontaneous
  Country: US (occurrence: US)
  Receive Date: 20181210
  Receipt Date: 20181210
  Transmission Date: 20190205
  Serious: Yes (Hospitalization)
  Sender: FDA-Public Use
  Company Number: None

PATIENT
  Age: 19 Year
  Sex: Female
  Weight: 58 kg

DRUGS (1)
  1. EXCEDRIN [Suspect]
     Active Substance: ACETAMINOPHEN\ASPIRIN\CAFFEINE
     Indication: HEADACHE
     Dosage: ?          OTHER FREQUENCY:ONE TIME;?
     Route: 048
     Dates: start: 20181209, end: 20181209

REACTIONS (1)
  - Palpitations [None]

NARRATIVE: CASE EVENT DATE: 20181209
